FAERS Safety Report 7120275-8 (Version None)
Quarter: 2010Q4

REPORT INFORMATION
  Report Type: 
  Country: None (occurrence: None)
  Receive Date: 20101123
  Receipt Date: 20101111
  Transmission Date: 20110411
  Serious: Yes (Hospitalization)
  Sender: FDA-Public Use
  Company Number: ES-ELI_LILLY_AND_COMPANY-ES201011003057

PATIENT
  Sex: Female

DRUGS (5)
  1. FORTEO [Suspect]
     Indication: OSTEOPOROSIS
     Dosage: 20 UG, WEEKLY (1/W)
     Route: 058
     Dates: start: 20100510
  2. FOSTER                             /00500401/ [Concomitant]
     Indication: ASTHMA
     Dosage: UNK, DAILY (1/D)
     Route: 048
  3. SEGURIL [Concomitant]
     Dosage: UNK, DAILY (1/D)
     Route: 048
  4. INALADUO [Concomitant]
     Indication: ASTHMA
  5. ANTIHYPERTENSIVES [Concomitant]
     Indication: HYPERTENSION
     Dosage: UNK, DAILY (1/D)
     Route: 048

REACTIONS (2)
  - ASTHMA [None]
  - UNDERDOSE [None]
